FAERS Safety Report 7717110-3 (Version None)
Quarter: 2011Q3

REPORT INFORMATION
  Report Type: 
  Country: None (occurrence: None)
  Receive Date: 20110830
  Receipt Date: 20110817
  Transmission Date: 20111222
  Serious: Yes (Other)
  Sender: FDA-Public Use
  Company Number: TW-RANBAXY-2011RR-47040

PATIENT
  Age: 46 Year
  Sex: Female

DRUGS (2)
  1. OLANZAPINE [Concomitant]
     Indication: PRODUCT USED FOR UNKNOWN INDICATION
     Dosage: UNK
     Route: 065
  2. ZOLPIDEM [Suspect]
     Indication: PRODUCT USED FOR UNKNOWN INDICATION
     Dosage: 400 MG, UNK
     Route: 065

REACTIONS (9)
  - PSYCHOTIC DISORDER [None]
  - DRUG ABUSE [None]
  - CONVULSION [None]
  - DELIRIUM [None]
  - HALLUCINATION [None]
  - SINUS TACHYCARDIA [None]
  - DRUG DEPENDENCE [None]
  - DRUG WITHDRAWAL SYNDROME [None]
  - DYSKINESIA [None]
